FAERS Safety Report 5094177-5 (Version None)
Quarter: 2006Q3

REPORT INFORMATION
  Report Type: 
  Country: None (occurrence: None)
  Receive Date: 20060831
  Receipt Date: 20060725
  Transmission Date: 20061208
  Serious: Yes (Other)
  Sender: FDA-Public Use
  Company Number: PHHO2006AR11853

PATIENT
  Age: 46 Year
  Sex: Male

DRUGS (3)
  1. CYCLOSPORINE [Suspect]
     Indication: RENAL TRANSPLANT
     Dosage: 800 MG
     Route: 048
     Dates: start: 20060625
  2. PREDNISONE TAB [Concomitant]
     Indication: RENAL TRANSPLANT
     Dosage: UNK, UNK
     Dates: start: 20060625
  3. MYCOPHENOLATE MOFETIL [Concomitant]
     Indication: RENAL TRANSPLANT
     Dosage: UNK, UNK
     Dates: start: 20060625

REACTIONS (3)
  - CHRONIC ALLOGRAFT NEPHROPATHY [None]
  - COMPLICATIONS OF TRANSPLANTED KIDNEY [None]
  - THROMBOTIC MICROANGIOPATHY [None]
